FAERS Safety Report 4989568-4 (Version None)
Quarter: 2006Q2

REPORT INFORMATION
  Report Type: 
  Country: None (occurrence: None)
  Receive Date: 20060502
  Receipt Date: 20060418
  Transmission Date: 20061013
  Serious: Yes (Hospitalization)
  Sender: FDA-Public Use
  Company Number: SE-MERCK-0604SWE00021

PATIENT
  Age: 72 Year
  Sex: Male

DRUGS (3)
  1. FOSAMAX [Suspect]
     Indication: OSTEOPOROSIS
     Route: 048
     Dates: start: 20051101, end: 20060123
  2. PREDNISOLONE [Concomitant]
     Route: 065
  3. REPAGLINIDE [Concomitant]
     Route: 065

REACTIONS (3)
  - BLADDER NEOPLASM [None]
  - NEPHRITIS INTERSTITIAL [None]
  - PROSTATE CANCER [None]
